FAERS Safety Report 6893282-8 (Version None)
Quarter: 2010Q3

REPORT INFORMATION
  Report Type: 
  Country: None (occurrence: None)
  Receive Date: 20100731
  Receipt Date: 20090729
  Transmission Date: 20110219
  Serious: No
  Sender: FDA-Public Use
  Company Number: US-PFIZER INC-2009224019

PATIENT
  Sex: Female
  Weight: 90.718 kg

DRUGS (7)
  1. GABAPENTIN [Suspect]
     Indication: PARAESTHESIA
     Dosage: 300 MG, 1X/DAY
     Dates: start: 20080901, end: 20090501
  2. METHOTREXATE [Concomitant]
     Dosage: 7.5 WEEKLY
  3. REMICADE [Concomitant]
     Dosage: 4.5 EVERY 4 WEEKS
  4. SIMVASTATIN [Concomitant]
     Dosage: 80
  5. SYNTHROID [Concomitant]
     Dosage: 112 UG
  6. FOLIC ACID [Concomitant]
     Dosage: 800 MG
  7. ASPIRIN [Concomitant]
     Dosage: 5 GRAINS

REACTIONS (2)
  - ABDOMINAL DISCOMFORT [None]
  - BALANCE DISORDER [None]
